FAERS Safety Report 7620744-8 (Version None)
Quarter: 2011Q3

REPORT INFORMATION
  Report Type: 
  Country: None (occurrence: None)
  Receive Date: 20110719
  Receipt Date: 20110715
  Transmission Date: 20111222
  Serious: Yes (Other)
  Sender: FDA-Public Use
  Company Number: DE-GLAXOSMITHKLINE-D0072064A

PATIENT
  Sex: Female

DRUGS (2)
  1. MULTIPLE MEDICATION [Suspect]
     Route: 065
  2. ARIXTRA [Suspect]
     Route: 065

REACTIONS (1)
  - THROMBOCYTOSIS [None]
